FAERS Safety Report 7319943-4 (Version None)
Quarter: 2011Q1

REPORT INFORMATION
  Report Type: 
  Country: None (occurrence: None)
  Receive Date: 20110228
  Receipt Date: 20101221
  Transmission Date: 20110831
  Serious: No
  Sender: FDA-Public Use
  Company Number: A0900994A

PATIENT
  Sex: Male

DRUGS (3)
  1. LAMOTRIGINE [Suspect]
     Route: 048
  2. BUSPIRONE [Concomitant]
  3. LAMICTAL [Suspect]
     Route: 048

REACTIONS (2)
  - DRUG INEFFECTIVE [None]
  - DRUG SCREEN POSITIVE [None]
